FAERS Safety Report 26087536 (Version 2)
Quarter: 2025Q4

REPORT INFORMATION
  Report Type: Spontaneous
  Country: US (occurrence: US)
  Receive Date: 20251125
  Receipt Date: 20251229
  Transmission Date: 20260117
  Serious: No
  Sender: BAYER HEALTHCARE PHARMACEUTICALS INC.
  Company Number: US-BAYER-2025A155001

PATIENT
  Age: 49 Year
  Sex: Female

DRUGS (2)
  1. MIRENA [Suspect]
     Active Substance: LEVONORGESTREL
     Indication: Intrauterine contraception
     Dosage: 20?G/DAY
     Route: 015
     Dates: start: 202508
  2. TREMFYA [Concomitant]
     Active Substance: GUSELKUMAB

REACTIONS (4)
  - Rash macular [None]
  - Pruritus [None]
  - Burning sensation [None]
  - Psoriasis [None]

NARRATIVE: CASE EVENT DATE: 20250101
